FAERS Safety Report 5821399-5 (Version None)
Quarter: 2008Q3

REPORT INFORMATION
  Report Type: 
  Country: None (occurrence: None)
  Receive Date: 20080722
  Receipt Date: 20080722
  Transmission Date: 20090109
  Serious: Yes (Death)
  Sender: FDA-Public Use
  Company Number: None

PATIENT
  Sex: Male

DRUGS (11)
  1. REVLIMID [Suspect]
     Indication: MYELODYSPLASTIC SYNDROME
     Dosage: 5MG DAILY PO
     Route: 048
  2. FENTANYL-100 [Concomitant]
  3. FLOMAX [Concomitant]
  4. LASIX [Concomitant]
  5. ATENOLOL [Concomitant]
  6. PROCRIT [Concomitant]
  7. DOXEPIN HCL [Concomitant]
  8. MORPHINE [Concomitant]
  9. MEGACE [Concomitant]
  10. METOLAZONE [Concomitant]
  11. NASAREL [Concomitant]

REACTIONS (9)
  - ASTHENIA [None]
  - BACK PAIN [None]
  - BLOOD CREATININE INCREASED [None]
  - CHROMATURIA [None]
  - CONTUSION [None]
  - MYOCARDIAL INFARCTION [None]
  - NEUTROPHIL COUNT DECREASED [None]
  - OROPHARYNGEAL PAIN [None]
  - THROMBOCYTOPENIA [None]
